FAERS Safety Report 25463083 (Version 2)
Quarter: 2025Q4

REPORT INFORMATION
  Report Type: Report from Study
  Country: JP (occurrence: JP)
  Receive Date: 20250620
  Receipt Date: 20251221
  Transmission Date: 20260118
  Serious: Yes (Hospitalization)
  Sender: EISAI
  Company Number: JP-Eisai-EC-2025-191487

PATIENT
  Age: 84 Year
  Sex: Female

DRUGS (1)
  1. LEQEMBI [Suspect]
     Active Substance: LECANEMAB-IRMB
     Indication: Dementia Alzheimer^s type
     Route: 042
     Dates: start: 20250613

REACTIONS (1)
  - Urinary tract infection [Not Recovered/Not Resolved]

NARRATIVE: CASE EVENT DATE: 20250615
